FAERS Safety Report 8334524-1 (Version None)
Quarter: 2012Q2

REPORT INFORMATION
  Report Type: 
  Country: None (occurrence: None)
  Receive Date: 20120503
  Receipt Date: 20120423
  Transmission Date: 20120825
  Serious: No
  Sender: FDA-Public Use
  Company Number: US-JNJFOC-20120314497

PATIENT

DRUGS (13)
  1. INVEGA SUSTENNA [Suspect]
     Dosage: INITIATED ON 22-NOV (UNSPECIFIED YEAR)
     Route: 030
  2. INVEGA SUSTENNA [Suspect]
     Dosage: INITIATED ON 22-MAR (UNSPECIFIED YEAR)
     Route: 030
  3. INVEGA SUSTENNA [Suspect]
     Dosage: INITIATED ON 24-JAN (UNSPECIFIED YEAR)
     Route: 030
  4. INVEGA SUSTENNA [Suspect]
     Route: 030
     Dates: start: 20111227
  5. INVEGA SUSTENNA [Suspect]
     Dosage: INITIATED ON 29-NOV (UNSPECIFIED YEAR)
     Route: 030
  6. INVEGA SUSTENNA [Suspect]
     Indication: PSYCHOTIC DISORDER
     Dosage: INITIATED ON 21-FEB (UNSPECIFIED YEAR)
     Route: 030
  7. BENZTROPINE MESYLATE [Concomitant]
     Indication: EXTRAPYRAMIDAL DISORDER
     Route: 065
  8. DEPAKOTE [Concomitant]
     Indication: DRUG THERAPY
     Route: 065
  9. HYDROCHLOROTHIAZIDE [Concomitant]
     Indication: HYPERTENSION
     Route: 065
  10. RISPERDAL [Concomitant]
     Indication: PSYCHOTIC DISORDER
     Dosage: WHEN NECESSARY
     Route: 065
  11. LISINOPRIL [Concomitant]
     Route: 065
  12. INVEGA SUSTENNA [Suspect]
     Route: 030
  13. RISPERDAL [Concomitant]
     Route: 065

REACTIONS (2)
  - INJECTION SITE MASS [None]
  - INJECTION SITE PAIN [None]
